FAERS Safety Report 14355514 (Version 4)
Quarter: 2018Q2

REPORT INFORMATION
  Report Type: Spontaneous
  Country: FR (occurrence: FR)
  Receive Date: 20180105
  Receipt Date: 20180521
  Transmission Date: 20180711
  Serious: Yes (Hospitalization, Other)
  Sender: FDA-Public Use
  Company Number: FR-PFIZER INC-2017552709

PATIENT
  Age: 63 Year
  Sex: Male
  Weight: 71 kg

DRUGS (5)
  1. TERCIAN [Suspect]
     Active Substance: CYAMEMAZINE
     Indication: INTENTIONAL OVERDOSE
     Dosage: 60 ML (^3 FLACON 30 ML^), UNK
     Route: 048
     Dates: start: 20171015, end: 20171015
  2. VENLAFAXINE HCL [Suspect]
     Active Substance: VENLAFAXINE HYDROCHLORIDE
     Indication: INTENTIONAL OVERDOSE
     Dosage: NP
     Route: 048
     Dates: start: 20171015, end: 20171015
  3. CLOMIPRAMINE [Suspect]
     Active Substance: CLOMIPRAMINE
     Indication: INTENTIONAL OVERDOSE
     Dosage: 50 DF, UNK
     Route: 048
     Dates: start: 20171015, end: 20171015
  4. MIRTAZAPINE. [Suspect]
     Active Substance: MIRTAZAPINE
     Indication: INTENTIONAL OVERDOSE
     Dosage: 300 MG, UNK
     Route: 048
     Dates: start: 20171015, end: 20171015
  5. THERALENE [Suspect]
     Active Substance: TRIMEPRAZINE
     Indication: INTENTIONAL OVERDOSE
     Dosage: 60 ML (2 FLACONS 30 ML), UNK
     Route: 048
     Dates: start: 20171015, end: 20171015

REACTIONS (5)
  - Miosis [Recovered/Resolved]
  - Extrapyramidal disorder [Recovered/Resolved]
  - Suicide attempt [Unknown]
  - Intentional overdose [Recovered/Resolved]
  - Coma [Recovered/Resolved]

NARRATIVE: CASE EVENT DATE: 20171015
